FAERS Safety Report 8907701 (Version 2)
Quarter: 2013Q3

REPORT INFORMATION
  Report Type: Spontaneous
  Country: DK (occurrence: DK)
  Receive Date: 20121114
  Receipt Date: 20130826
  Transmission Date: 20140515
  Serious: Yes (Hospitalization, Disabling)
  Sender: FDA-Public Use
  Company Number: DK-PFIZER INC-2012280684

PATIENT
  Age: 7 Year
  Sex: Male
  Weight: 24 kg

DRUGS (2)
  1. GENOTROPIN [Suspect]
     Indication: HYPOPITUITARISM
     Route: 058
     Dates: start: 20081020, end: 20111123
  2. HYDROCORTISONE [Concomitant]
     Dosage: 2.5 MG, 3X/DAY

REACTIONS (1)
  - Osteochondrosis [Not Recovered/Not Resolved]
